FAERS Safety Report 23346724 (Version 2)
Quarter: 2024Q2

REPORT INFORMATION
  Report Type: Spontaneous
  Country: GB (occurrence: GB)
  Receive Date: 20231228
  Receipt Date: 20240422
  Transmission Date: 20240716
  Serious: Yes (Other)
  Sender: FDA-Public Use
  Company Number: GB-PFIZER INC-PV202300204726

PATIENT
  Age: 80 Year
  Sex: Female

DRUGS (1)
  1. GENOTROPIN [Suspect]
     Active Substance: SOMATROPIN
     Indication: Growth hormone deficiency
     Dosage: 0.3 MG
     Route: 058

REACTIONS (4)
  - Brain neoplasm [Unknown]
  - Pituitary tumour [Unknown]
  - Seizure [Recovered/Resolved with Sequelae]
  - Product dose omission issue [Unknown]
